FAERS Safety Report 8234636-7 (Version None)
Quarter: 2012Q1

REPORT INFORMATION
  Report Type: 
  Country: None (occurrence: None)
  Receive Date: 20120326
  Receipt Date: 20120319
  Transmission Date: 20120608
  Serious: Yes (Other)
  Sender: FDA-Public Use
  Company Number: US-ELI_LILLY_AND_COMPANY-US201203005498

PATIENT
  Sex: Female
  Weight: 76.19 kg

DRUGS (7)
  1. BYDUREON [Suspect]
     Indication: TYPE 2 DIABETES MELLITUS
     Dosage: 2 MG, WEEKLY (1/W)
     Route: 058
     Dates: start: 20120307, end: 20120314
  2. KOMBIGLYZE XR [Concomitant]
     Indication: TYPE 2 DIABETES MELLITUS
     Dosage: UNK
     Dates: start: 20120316, end: 20120318
  3. PAXIL [Concomitant]
     Dosage: 10 MG, QD
     Route: 048
  4. LOVASTATIN [Concomitant]
     Dosage: UNK, QD
     Route: 048
  5. JANUVIA [Concomitant]
     Indication: TYPE 2 DIABETES MELLITUS
     Dosage: 100 MG, QD
     Route: 048
  6. METFORMIN HCL [Concomitant]
     Indication: TYPE 2 DIABETES MELLITUS
     Dosage: 1000 MG, BID
  7. SIMVASTATIN [Concomitant]
     Dosage: 20 MG, QD
     Route: 048

REACTIONS (11)
  - THIRST [None]
  - ABDOMINAL DISTENSION [None]
  - DIZZINESS [None]
  - URTICARIA [None]
  - NAUSEA [None]
  - CONSTIPATION [None]
  - HYPERHIDROSIS [None]
  - DYSPNOEA [None]
  - PAIN [None]
  - PRURITUS [None]
  - FEELING HOT [None]
